FAERS Safety Report 22112737 (Version 1)
Quarter: 2023Q1

REPORT INFORMATION
  Report Type: Spontaneous
  Country: US (occurrence: US)
  Receive Date: 20230319
  Receipt Date: 20230319
  Transmission Date: 20230418
  Serious: Yes (Death, Life-Threatening, Other)
  Sender: FDA-Public Use
  Company Number: US-BRISTOL-MYERS SQUIBB COMPANY-2023-036887

PATIENT
  Age: 66 Year
  Sex: Female

DRUGS (2)
  1. NIVOLUMAB [Suspect]
     Active Substance: NIVOLUMAB
     Indication: Metastatic malignant melanoma
  2. IPILIMUMAB [Suspect]
     Active Substance: IPILIMUMAB
     Indication: Metastatic malignant melanoma

REACTIONS (3)
  - Immune-mediated myocarditis [Fatal]
  - Immune-mediated myasthenia gravis [Not Recovered/Not Resolved]
  - Cardiogenic shock [Fatal]
